FAERS Safety Report 7349972-6 (Version None)
Quarter: 2011Q1

REPORT INFORMATION
  Report Type: 
  Country: None (occurrence: None)
  Receive Date: 20110314
  Receipt Date: 20110303
  Transmission Date: 20110831
  Serious: Yes (Hospitalization, Other)
  Sender: FDA-Public Use
  Company Number: US-ELI_LILLY_AND_COMPANY-US201102004952

PATIENT
  Sex: Male
  Weight: 153.29 kg

DRUGS (16)
  1. PEMETREXED [Suspect]
     Dosage: 500 MG/M2, Q 21 DAYS
     Route: 042
     Dates: end: 20110209
  2. POTASSIUM CHLORIDE [Concomitant]
     Indication: SUPPLEMENTATION THERAPY
  3. METFORMIN [Concomitant]
     Indication: DIABETES MELLITUS
  4. DIOVAN [Concomitant]
     Indication: HYPERTENSION
  5. WELCHOL [Concomitant]
     Indication: DIARRHOEA
  6. OXYCODONE HCL AND ACETAMINOPHEN [Concomitant]
     Indication: BACK PAIN
  7. OMEPRAZOLE [Concomitant]
     Indication: GASTROOESOPHAGEAL REFLUX DISEASE
  8. PEMETREXED [Suspect]
     Indication: NON-SMALL CELL LUNG CANCER
     Dosage: 500 MG/M2, EVERY 21 DAYS
     Route: 042
     Dates: start: 20100524, end: 20100804
  9. BEVACIZUMAB [Suspect]
     Dosage: 15 MG/KG, EVERY 21 DAYS
     Route: 042
     Dates: end: 20101201
  10. ZYPREXA [Concomitant]
     Indication: DEPRESSION
  11. TRAZODONE [Concomitant]
     Indication: INSOMNIA
  12. LOVASTATIN [Concomitant]
     Indication: HYPERCHOLESTEROLAEMIA
  13. CARBOPLATIN [Suspect]
     Indication: NON-SMALL CELL LUNG CANCER
     Dosage: 6 AUC EVERY 21 DAYS
     Route: 042
     Dates: start: 20100524, end: 20100804
  14. BEVACIZUMAB [Suspect]
     Indication: NON-SMALL CELL LUNG CANCER
     Dosage: 15 MG/KG, EVERY 21 DAYS
     Route: 042
     Dates: start: 20100524, end: 20100804
  15. CARVEDILOL [Concomitant]
     Indication: HYPERTENSION
  16. LASIX [Concomitant]
     Indication: CHRONIC OBSTRUCTIVE PULMONARY DISEASE

REACTIONS (4)
  - DIARRHOEA [None]
  - SEPSIS [None]
  - DEHYDRATION [None]
  - NEUTROPENIA [None]
